FAERS Safety Report 9018280 (Version 1)
Quarter: 2013Q1

REPORT INFORMATION
  Report Type: Spontaneous
  Country: US (occurrence: None)
  Receive Date: 20130111
  Receipt Date: 20130111
  Transmission Date: 20140127
  Serious: Yes (Hospitalization)
  Sender: FDA-Public Use
  Company Number: None

PATIENT
  Age: 72 Year
  Sex: Male
  Weight: 189.1 kg

DRUGS (2)
  1. FENTANYL [Suspect]
     Indication: PAIN
     Route: 061
  2. BACLOFEN [Suspect]
     Dosage: 5 MG TID PO
     Route: 048

REACTIONS (2)
  - Confusional state [None]
  - Mental status changes [None]
